FAERS Safety Report 24675990 (Version 1)
Quarter: 2024Q4

REPORT INFORMATION
  Report Type: Spontaneous
  Country: FR (occurrence: FR)
  Receive Date: 20241128
  Receipt Date: 20241128
  Transmission Date: 20250114
  Serious: Yes (Death, Hospitalization, Other)
  Sender: MERCK
  Company Number: None

PATIENT
  Age: 51 Year
  Sex: Male
  Weight: 82.5 kg

DRUGS (1)
  1. PEMBROLIZUMAB [Suspect]
     Active Substance: PEMBROLIZUMAB
     Indication: Breast cancer
     Dosage: 1 DOSAGE FORM, Q3W
     Route: 042
     Dates: start: 20240604, end: 20240716

REACTIONS (2)
  - Toxic skin eruption [Fatal]
  - Drug eruption [Fatal]

NARRATIVE: CASE EVENT DATE: 20240604
